FAERS Safety Report 7007298-4 (Version None)
Quarter: 2010Q3

REPORT INFORMATION
  Report Type: 
  Country: None (occurrence: None)
  Receive Date: 20100922
  Receipt Date: 20100913
  Transmission Date: 20110219
  Serious: Yes (Other)
  Sender: FDA-Public Use
  Company Number: PHHY2010US60573

PATIENT
  Age: 83 Year
  Sex: Male

DRUGS (11)
  1. ZOMETA [Suspect]
     Indication: PROSTATE CANCER METASTATIC
     Dosage: UNK
     Route: 042
     Dates: start: 20100419
  2. ZOMETA [Suspect]
     Dosage: UNK
     Dates: start: 20100517
  3. PREDNISONE [Concomitant]
  4. COMPAZINE [Concomitant]
  5. TAXOTERE [Concomitant]
  6. KYTRIL [Concomitant]
  7. NITRGLYCERIN TRANSDERMAL SYSTEM [Concomitant]
  8. MULTI-VITAMINS [Concomitant]
  9. ASCORBIC ACID [Concomitant]
  10. LUPRON [Concomitant]
  11. COMBIVENT [Concomitant]

REACTIONS (6)
  - ATRIAL FIBRILLATION [None]
  - CARDIAC FAILURE CONGESTIVE [None]
  - COUGH [None]
  - DYSPNOEA [None]
  - HEART RATE IRREGULAR [None]
  - RESPIRATION ABNORMAL [None]
